FAERS Safety Report 10267135 (Version 1)
Quarter: 2014Q2

REPORT INFORMATION
  Report Type: Spontaneous
  Country: US (occurrence: US)
  Receive Date: 20140630
  Receipt Date: 20140630
  Transmission Date: 20141212
  Serious: No
  Sender: FDA-Public Use
  Company Number: US-JNJFOC-20140611781

PATIENT
  Sex: Male
  Weight: 76.2 kg

DRUGS (14)
  1. DURAGESIC [Suspect]
     Indication: PAIN
     Route: 062
  2. DURAGESIC [Suspect]
     Indication: PAIN
     Route: 062
  3. DURAGESIC [Suspect]
     Indication: PAIN
     Dosage: 100 UG/HR AND 100 UG/HR
     Route: 062
  4. DURAGESIC [Suspect]
     Indication: PAIN
     Dosage: 100 UG/HR AND 100 UG/HR
     Route: 062
  5. DURAGESIC [Suspect]
     Indication: PAIN
     Dosage: 100 UG/HR AND 100 UG/HR
     Route: 062
  6. DURAGESIC [Suspect]
     Indication: PAIN
     Route: 062
  7. DURAGESIC [Suspect]
     Indication: PAIN
     Route: 062
  8. DURAGESIC [Suspect]
     Indication: PAIN
     Dosage: 100 UG/HR AND  50 UG/HR
     Route: 062
  9. DURAGESIC [Suspect]
     Indication: PAIN
     Dosage: 25 UG/HR AND 25 UG/HR
     Route: 062
     Dates: start: 2014
  10. LYRICA [Concomitant]
     Indication: NEURALGIA
     Route: 048
  11. PROVIGIL [Concomitant]
     Indication: SLEEP DISORDER
     Dosage: 1-2 TIMES
     Route: 048
  12. HCTZ [Concomitant]
     Indication: SWELLING
     Dosage: 1-2 TIMES
     Route: 048
  13. WELLBUTRIN [Concomitant]
     Indication: DEPRESSION
     Route: 048
     Dates: start: 2014
  14. XANAX [Concomitant]
     Indication: ANXIETY
     Route: 048
     Dates: start: 2014

REACTIONS (3)
  - Product adhesion issue [Unknown]
  - Drug ineffective [Unknown]
  - Inappropriate schedule of drug administration [Unknown]
